FAERS Safety Report 10337296 (Version 1)
Quarter: 2014Q3

REPORT INFORMATION
  Report Type: Spontaneous
  Country: AR (occurrence: AR)
  Receive Date: 20140723
  Receipt Date: 20140723
  Transmission Date: 20150326
  Serious: Yes (Other)
  Sender: FDA-Public Use
  Company Number: PHHY2014AR090154

PATIENT
  Sex: Male

DRUGS (2)
  1. BISOPROLOL [Suspect]
     Active Substance: BISOPROLOL
  2. DRONEDARONE [Interacting]
     Active Substance: DRONEDARONE

REACTIONS (2)
  - Bradycardia [Unknown]
  - Drug interaction [Unknown]
